FAERS Safety Report 7101840-0 (Version None)
Quarter: 2010Q4

REPORT INFORMATION
  Report Type: 
  Country: None (occurrence: None)
  Receive Date: 20101115
  Receipt Date: 20101102
  Transmission Date: 20110411
  Serious: Yes (Other)
  Sender: FDA-Public Use
  Company Number: PHHY2010US74078

PATIENT
  Age: 61 Year
  Sex: Female

DRUGS (1)
  1. FEMARA [Suspect]
     Dosage: 2.5 MG, UNK

REACTIONS (4)
  - DISABILITY [None]
  - DRUG INTOLERANCE [None]
  - HORMONE LEVEL ABNORMAL [None]
  - PAIN IN EXTREMITY [None]
